FAERS Safety Report 6295685-1 (Version None)
Quarter: 2009Q3

REPORT INFORMATION
  Report Type: 
  Country: None (occurrence: None)
  Receive Date: 20090804
  Receipt Date: 20090724
  Transmission Date: 20100115
  Serious: Yes (Other)
  Sender: FDA-Public Use
  Company Number: US-WYE-H08690509

PATIENT
  Sex: Female

DRUGS (5)
  1. PREMARIN [Suspect]
  2. CYCRIN [Suspect]
  3. ESTROPIPATE [Suspect]
  4. PROVERA [Suspect]
  5. ACTIVELLA [Suspect]

REACTIONS (3)
  - BREAST CANCER RECURRENT [None]
  - RAYNAUD'S PHENOMENON [None]
  - SCLERODERMA [None]
